FAERS Safety Report 13855384 (Version 1)
Quarter: 2017Q3

REPORT INFORMATION
  Report Type: Spontaneous
  Country: US (occurrence: US)
  Receive Date: 20170810
  Receipt Date: 20170810
  Transmission Date: 20171127
  Serious: No
  Sender: FDA-Public Use
  Company Number: US-VIFOR (INTERNATIONAL) INC.-VIT-2017-06388

PATIENT
  Sex: Female

DRUGS (12)
  1. LIPITOR [Concomitant]
     Active Substance: ATORVASTATIN CALCIUM
  2. NOVOLOG [Concomitant]
     Active Substance: INSULIN ASPART
  3. RENVELA [Concomitant]
     Active Substance: SEVELAMER CARBONATE
  4. TACROLIMUS. [Concomitant]
     Active Substance: TACROLIMUS
  5. VELTASSA [Suspect]
     Active Substance: PATIROMER
     Indication: HYPERKALAEMIA
     Route: 048
     Dates: start: 20160617
  6. LANTUS [Concomitant]
     Active Substance: INSULIN GLARGINE
  7. MIDODRINE HYDROCHLORIDE. [Concomitant]
     Active Substance: MIDODRINE HYDROCHLORIDE
  8. WARFARIN SODIUM. [Concomitant]
     Active Substance: WARFARIN SODIUM
  9. FAMOTIDINE. [Concomitant]
     Active Substance: FAMOTIDINE
  10. PREDNISONE. [Concomitant]
     Active Substance: PREDNISONE
  11. ASCORBIC ACID. [Concomitant]
     Active Substance: ASCORBIC ACID
  12. SODIUM BICARBONATE. [Concomitant]
     Active Substance: SODIUM BICARBONATE

REACTIONS (2)
  - Flatulence [Not Recovered/Not Resolved]
  - Gastrointestinal motility disorder [Not Recovered/Not Resolved]
